FAERS Safety Report 8818108 (Version 1)
Quarter: 2012Q4

REPORT INFORMATION
  Report Type: Report from Study
  Country: US (occurrence: US)
  Receive Date: 20121001
  Receipt Date: 20121001
  Transmission Date: 20130627
  Serious: Yes (Other)
  Sender: FDA-Public Use
  Company Number: US-US-EMD SERONO, INC.-7163310

PATIENT
  Age: 56 Year
  Sex: Female
  Weight: 91 kg

DRUGS (2)
  1. REBIF [Suspect]
     Indication: PRODUCT USED FOR UNKNOWN INDICATION
     Route: 058
     Dates: start: 20120123, end: 201208
  2. REBIF [Suspect]
     Route: 058
     Dates: start: 20120917

REACTIONS (6)
  - Renal impairment [Unknown]
  - Diarrhoea [Unknown]
  - Weight decreased [Unknown]
  - Nausea [Unknown]
  - Dysgeusia [Unknown]
  - Malaise [Unknown]
